FAERS Safety Report 10827688 (Version 1)
Quarter: 2015Q1

REPORT INFORMATION
  Report Type: Spontaneous
  Country: BR (occurrence: None)
  Receive Date: 20150213
  Receipt Date: 20150213
  Transmission Date: 20150721
  Serious: Yes (Hospitalization, Other)
  Sender: FDA-Public Use
  Company Number: 2015BI008511

PATIENT
  Sex: Female

DRUGS (2)
  1. FINGOLIMOD [Concomitant]
     Active Substance: FINGOLIMOD
  2. TYSABRI [Suspect]
     Active Substance: NATALIZUMAB
     Indication: RELAPSING-REMITTING MULTIPLE SCLEROSIS
     Route: 042

REACTIONS (5)
  - JC virus test positive [None]
  - Seizure [None]
  - Progressive multifocal leukoencephalopathy [None]
  - Depressed level of consciousness [None]
  - Fall [None]
